FAERS Safety Report 9561069 (Version 2)
Quarter: 2014Q1

REPORT INFORMATION
  Report Type: Spontaneous
  Country: US (occurrence: US)
  Receive Date: 20130927
  Receipt Date: 20140317
  Transmission Date: 20141002
  Serious: No
  Sender: FDA-Public Use
  Company Number: US-BIOGENIDEC-2013BI056548

PATIENT
  Age: 58 Year
  Sex: Female

DRUGS (5)
  1. TECFIDERA [Suspect]
     Indication: MULTIPLE SCLEROSIS
     Route: 048
     Dates: start: 20130529
  2. PROVIGIL [Concomitant]
  3. FLUOXETINE HCL [Concomitant]
  4. BUPROPION [Concomitant]
  5. VITAMIN D [Concomitant]

REACTIONS (4)
  - Night sweats [Recovered/Resolved with Sequelae]
  - Abdominal pain upper [Unknown]
  - Flushing [Unknown]
  - Hot flush [Not Recovered/Not Resolved]
